FAERS Safety Report 6460871-4 (Version None)
Quarter: 2009Q4

REPORT INFORMATION
  Report Type: 
  Country: None (occurrence: None)
  Receive Date: 20091125
  Receipt Date: 20091125
  Transmission Date: 20100525
  Serious: Yes (Life-Threatening)
  Sender: FDA-Public Use
  Company Number: None

PATIENT
  Age: 79 Year
  Sex: Male
  Weight: 112.7642 kg

DRUGS (1)
  1. HURRICAINE SPRAY 20% 20% BEUTLICH [Suspect]
     Indication: ANAESTHESIA PROCEDURE
     Dosage: NOT SPECIFIED X 1 OROPHARINGE
     Dates: start: 20091030, end: 20091030

REACTIONS (1)
  - METHAEMOGLOBINAEMIA [None]
